FAERS Safety Report 10153038 (Version 3)
Quarter: 2014Q2

REPORT INFORMATION
  Report Type: Report from Study
  Country: CA (occurrence: CA)
  Receive Date: 20140505
  Receipt Date: 20140606
  Transmission Date: 20141212
  Serious: Yes (Hospitalization)
  Sender: FDA-Public Use
  Company Number: CA-JNJFOC-20140312959

PATIENT
  Age: 37 Year
  Sex: Female
  Weight: 49 kg

DRUGS (22)
  1. REMICADE [Suspect]
     Indication: RHEUMATOID ARTHRITIS
     Route: 042
     Dates: start: 2010
  2. TRIDURAL [Concomitant]
     Route: 065
  3. RANITIDINE [Concomitant]
     Route: 065
  4. NEXIUM [Concomitant]
     Route: 065
  5. PREDNISONE [Concomitant]
     Route: 065
  6. POTASSIUM [Concomitant]
     Route: 065
  7. VITAMIN  D [Concomitant]
     Route: 065
  8. VITAMIN B12 [Concomitant]
     Route: 065
  9. LYRICA [Concomitant]
     Route: 065
  10. CALCIUM [Concomitant]
     Route: 065
  11. VITMAIN E [Concomitant]
     Route: 065
  12. OMEGA 3 [Concomitant]
     Route: 065
  13. SENNA/DOCUSATE [Concomitant]
     Route: 065
  14. FOLIC ACID [Concomitant]
     Route: 065
  15. ELAVIL [Concomitant]
     Dosage: 25-75 MG
     Route: 065
  16. CELLCEPT [Concomitant]
     Route: 065
  17. LORAZEPAM [Concomitant]
     Dosage: HOUR SLEEP AS NEEDED
     Route: 065
  18. TRAZODONE [Concomitant]
     Route: 048
  19. METOPROLOL [Concomitant]
     Route: 065
  20. MAXALT [Concomitant]
     Indication: MIGRAINE
     Route: 065
  21. TRICYCLEN [Concomitant]
     Route: 048
  22. SUMATRIPTAN [Concomitant]
     Indication: MIGRAINE
     Route: 065

REACTIONS (5)
  - Sinusitis [Not Recovered/Not Resolved]
  - Eye swelling [Not Recovered/Not Resolved]
  - Migraine [Unknown]
  - Gastroenteritis viral [Not Recovered/Not Resolved]
  - Gastric infection [Recovered/Resolved]
